FAERS Safety Report 4695620-3 (Version None)
Quarter: 2005Q2

REPORT INFORMATION
  Report Type: 
  Country: None (occurrence: None)
  Receive Date: 20050617
  Receipt Date: 20050617
  Transmission Date: 20051028
  Serious: Yes (Other)
  Sender: FDA-Public Use
  Company Number: None

PATIENT
  Age: 41 Year
  Sex: Male
  Weight: 70.3075 kg

DRUGS (2)
  1. VFEND [Suspect]
     Indication: ASPERGILLOSIS
     Dosage: 300 MG IV Q 12H
     Route: 042
     Dates: start: 20050513
  2. VFEND [Suspect]
     Indication: FUNGAL INFECTION
     Dosage: 300 MG IV Q 12H
     Route: 042
     Dates: start: 20050513

REACTIONS (3)
  - RASH ERYTHEMATOUS [None]
  - RASH SCALY [None]
  - SKIN EXFOLIATION [None]
